FAERS Safety Report 5827516-5 (Version None)
Quarter: 2008Q2

REPORT INFORMATION
  Report Type: 
  Country: None (occurrence: None)
  Receive Date: 20080601
  Receipt Date: 20080212
  Transmission Date: 20081010
  Serious: No
  Sender: FDA-Public Use
  Company Number: US200802002777

PATIENT
  Age: 75 Year
  Sex: Female

DRUGS (5)
  1. BYETTA [Suspect]
     Indication: TYPE 2 DIABETES MELLITUS
     Dosage: 5 UG, 2/D, SUBCUTANEOUS
     Route: 058
     Dates: start: 20080116
  2. GLUCOTROL [Concomitant]
  3. CLUCOPHAGE (METFORMIN HYDROCHLORIDE) [Concomitant]
  4. INSULIN (INSULIN) [Concomitant]
  5. COUMADIN [Concomitant]

REACTIONS (3)
  - HYPOACUSIS [None]
  - INJECTION SITE HAEMORRHAGE [None]
  - NASOPHARYNGITIS [None]
